FAERS Safety Report 13099821 (Version 2)
Quarter: 2017Q1

REPORT INFORMATION
  Report Type: Report from Study
  Country: US (occurrence: US)
  Receive Date: 20170110
  Receipt Date: 20170306
  Transmission Date: 20170428
  Serious: No
  Sender: FDA-Public Use
  Company Number: US-AMGEN-USASL2017001315

PATIENT
  Age: 15 Year
  Sex: Female

DRUGS (3)
  1. ENBREL [Suspect]
     Active Substance: ETANERCEPT
     Indication: JUVENILE IDIOPATHIC ARTHRITIS
     Dosage: UNK
     Route: 065
  2. ENBREL [Suspect]
     Active Substance: ETANERCEPT
     Dosage: 50 MG, Q2WK, (50MG 1WK ON/1 WK OFF)
     Route: 065
  3. ENBREL [Suspect]
     Active Substance: ETANERCEPT
     Dosage: 50 MG, QWK
     Route: 065
     Dates: start: 201701

REACTIONS (8)
  - Anxiety [Unknown]
  - Compulsive lip biting [Unknown]
  - Drug dose omission [Unknown]
  - Arthralgia [Unknown]
  - Onychophagia [Unknown]
  - Joint swelling [Unknown]
  - Insomnia [Unknown]
  - Compulsive cheek biting [Unknown]

NARRATIVE: CASE EVENT DATE: 201612
